FAERS Safety Report 4824009-9 (Version None)
Quarter: 2005Q4

REPORT INFORMATION
  Report Type: 
  Country: None (occurrence: None)
  Receive Date: 20051107
  Receipt Date: 20051027
  Transmission Date: 20060501
  Serious: Yes (Other)
  Sender: FDA-Public Use
  Company Number: 2005150068

PATIENT
  Age: 49 Year
  Sex: Female
  Weight: 40.8237 kg

DRUGS (10)
  1. LIPITOR [Suspect]
     Indication: ILL-DEFINED DISORDER
  2. NEURONTIN [Suspect]
     Indication: PAIN
  3. DETROL LA [Concomitant]
  4. MIRALAX [Concomitant]
  5. SANDIMMUNE [Concomitant]
  6. FOLTX (CYANOCOBALAMIN, FOLIC ACID, PYRIDOXINE) [Concomitant]
  7. CELLCEPT [Concomitant]
  8. PRILOSEC [Concomitant]
  9. PRAVACHOL [Concomitant]
  10. XANAX [Concomitant]

REACTIONS (11)
  - ABDOMINAL ADHESIONS [None]
  - CHROMATURIA [None]
  - DIFFICULTY IN WALKING [None]
  - DRUG INEFFECTIVE [None]
  - HEPATIC FAILURE [None]
  - IMPAIRED DRIVING ABILITY [None]
  - INTESTINAL STRANGULATION [None]
  - PAIN [None]
  - PROCTALGIA [None]
  - RENAL FAILURE [None]
  - RHABDOMYOLYSIS [None]
